FAERS Safety Report 20684956 (Version 1)
Quarter: 2022Q2

REPORT INFORMATION
  Report Type: Spontaneous
  Country: US (occurrence: None)
  Receive Date: 20220405
  Receipt Date: 20220405
  Transmission Date: 20220721
  Serious: Yes (Hospitalization)
  Sender: FDA-Public Use
  Company Number: None

PATIENT
  Age: 74 Year
  Sex: Male

DRUGS (1)
  1. ZYTIGA [Suspect]
     Active Substance: ABIRATERONE ACETATE
     Dosage: OTHER QUANTITY : 500MG TAB , 2 TABS;?FREQUENCY : TWICE A DAY;?
     Route: 048
     Dates: start: 2019

REACTIONS (4)
  - Abdominal pain upper [None]
  - Abdominal distension [None]
  - Bone neoplasm [None]
  - Nerve compression [None]

NARRATIVE: CASE EVENT DATE: 20220228
